FAERS Safety Report 5767473-3 (Version None)
Quarter: 2008Q2

REPORT INFORMATION
  Report Type: 
  Country: None (occurrence: None)
  Receive Date: 20080611
  Receipt Date: 20080611
  Transmission Date: 20081010
  Serious: No
  Sender: FDA-Public Use
  Company Number: None

PATIENT
  Age: 56 Year
  Sex: Male
  Weight: 72.1219 kg

DRUGS (1)
  1. LEVITRA [Suspect]
     Dosage: 10MG 1 PER WEEK PO
     Route: 048

REACTIONS (3)
  - DIZZINESS [None]
  - HEARING IMPAIRED [None]
  - TINNITUS [None]
